FAERS Safety Report 9733442 (Version 1)
Quarter: 2013Q4

REPORT INFORMATION
  Report Type: Spontaneous
  Country: US (occurrence: None)
  Receive Date: 20131204
  Receipt Date: 20131204
  Transmission Date: 20140711
  Serious: Yes (Other)
  Sender: FDA-Public Use
  Company Number: None

PATIENT
  Age: 19 Year
  Sex: Male
  Weight: 97.52 kg

DRUGS (1)
  1. LAMICTAL [Suspect]
     Indication: EPILEPSY
     Dosage: 400 MG, BID, PO
     Route: 048
     Dates: start: 200902, end: 201005

REACTIONS (3)
  - Convulsion [None]
  - Insomnia [None]
  - Product substitution issue [None]
